FAERS Safety Report 9519803 (Version 1)
Quarter: 2013Q3

REPORT INFORMATION
  Report Type: Spontaneous
  Country: US (occurrence: None)
  Receive Date: 20130911
  Receipt Date: 20130911
  Transmission Date: 20140515
  Serious: Yes (Life-Threatening, Hospitalization)
  Sender: FDA-Public Use
  Company Number: None

PATIENT
  Age: 46 Year
  Sex: Male
  Weight: 80 kg

DRUGS (1)
  1. XARELTO [Suspect]
     Indication: DEEP VEIN THROMBOSIS
     Dosage: FIRST + ONLY DOSE ON 09/04/2013
     Route: 048
     Dates: start: 20130904

REACTIONS (6)
  - Rash [None]
  - Dizziness [None]
  - Dizziness [None]
  - Loss of consciousness [None]
  - Unresponsive to stimuli [None]
  - Pruritus [None]
